FAERS Safety Report 4455656-4 (Version None)
Quarter: 2004Q3

REPORT INFORMATION
  Report Type: 
  Country: None (occurrence: None)
  Receive Date: 20040917
  Receipt Date: 20040907
  Transmission Date: 20050211
  Serious: No
  Sender: FDA-Public Use
  Company Number: 2004AP04712

PATIENT
  Age: 47 Year
  Sex: Female

DRUGS (1)
  1. TENORMIN [Suspect]
     Indication: HYPERTENSION
     Dosage: 50 MG DAILY PO
     Route: 048
     Dates: start: 20010920, end: 20011001

REACTIONS (6)
  - ANXIETY [None]
  - BLOOD PRESSURE DECREASED [None]
  - DISCOMFORT [None]
  - HEART RATE DECREASED [None]
  - IMPAIRED WORK ABILITY [None]
  - VERTIGO [None]
